FAERS Safety Report 11676294 (Version 2)
Quarter: 2015Q4

REPORT INFORMATION
  Report Type: Spontaneous
  Country: AT (occurrence: AT)
  Receive Date: 20151028
  Receipt Date: 20151116
  Transmission Date: 20160304
  Serious: Yes (Other)
  Sender: FDA-Public Use
  Company Number: AT-TEVA-603948ISR

PATIENT
  Age: 35 Year
  Sex: Male

DRUGS (1)
  1. ATORVASTATIN [Suspect]
     Active Substance: ATORVASTATIN
     Dosage: HIGH DOSE

REACTIONS (3)
  - Angina pectoris [Recovered/Resolved]
  - Lipids abnormal [Unknown]
  - Hypercholesterolaemia [Unknown]
